FAERS Safety Report 6618072-2 (Version None)
Quarter: 2010Q1

REPORT INFORMATION
  Report Type: 
  Country: None (occurrence: None)
  Receive Date: 20100302
  Receipt Date: 20100218
  Transmission Date: 20100710
  Serious: Yes (Hospitalization)
  Sender: FDA-Public Use
  Company Number: 2009291507

PATIENT
  Age: 62 Year
  Sex: Female

DRUGS (2)
  1. DALTEPARIN SODIUM [Suspect]
     Indication: LUNG NEOPLASM MALIGNANT
     Dates: start: 20090416
  2. CISPLATIN [Suspect]
     Indication: LUNG NEOPLASM MALIGNANT
     Dosage: INTRAVENOUS
     Route: 042
     Dates: start: 20090521, end: 20090528

REACTIONS (13)
  - ANAPHYLACTIC REACTION [None]
  - DIZZINESS [None]
  - DYSPNOEA EXERTIONAL [None]
  - FATIGUE [None]
  - HYPERTENSION [None]
  - HYPOTENSION [None]
  - LETHARGY [None]
  - LIMB DISCOMFORT [None]
  - METASTASES TO LUNG [None]
  - METASTASES TO LYMPH NODES [None]
  - MYOCARDIAL ISCHAEMIA [None]
  - ORTHOSTATIC HYPOTENSION [None]
  - PULMONARY EMBOLISM [None]
